FAERS Safety Report 9257370 (Version 1)
Quarter: 2013Q1

REPORT INFORMATION
  Report Type: Spontaneous
  Country: US (occurrence: None)
  Receive Date: 20121212
  Receipt Date: 20121212
  Transmission Date: 20140127
  Serious: No
  Sender: FDA-Public Use
  Company Number: 1209USA005069

PATIENT
  Age: 56 Year
  Sex: Male

DRUGS (3)
  1. VICTRELIS (BOCEPREVIR) [Suspect]
     Indication: HEPATITIS C
     Dates: start: 201207, end: 201209
  2. PEGASYS (PEGINTERFERON ALFA-2A) [Suspect]
     Route: 048
  3. RIBASPHERE (RIBAVIRIN) [Suspect]
     Route: 048

REACTIONS (6)
  - Pyrexia [None]
  - Vomiting [None]
  - Nausea [None]
  - Diarrhoea [None]
  - Rash erythematous [None]
  - Laboratory test abnormal [None]
